FAERS Safety Report 21519392 (Version 1)
Quarter: 2022Q4

REPORT INFORMATION
  Report Type: Spontaneous
  Country: DE (occurrence: DE)
  Receive Date: 20221028
  Receipt Date: 20221028
  Transmission Date: 20230113
  Serious: Yes (Congenital Anomaly)
  Sender: FDA-Public Use
  Company Number: DE-EMBRYOTOX-202200144

PATIENT
  Age: 1 Day
  Sex: Male
  Weight: 3.17 kg

DRUGS (12)
  1. SPIRIVA [Suspect]
     Active Substance: TIOTROPIUM BROMIDE MONOHYDRATE
     Indication: Asthma
     Route: 064
     Dates: start: 20210519, end: 20220209
  2. BUDESONIDE\FORMOTEROL [Suspect]
     Active Substance: BUDESONIDE\FORMOTEROL
     Indication: Asthma
     Dosage: 640 [?G/D (4X160) ] / 36 [?G/D (4X9) ]
     Route: 064
     Dates: start: 20210519, end: 20220209
  3. ATROVENT [Concomitant]
     Active Substance: IPRATROPIUM BROMIDE
     Indication: Asthma
     Route: 064
     Dates: start: 20210519, end: 20220209
  4. ERYTHROMYCIN [Concomitant]
     Active Substance: ERYTHROMYCIN
     Indication: Bronchitis
     Dosage: ON 2 OCASSIONS: BETWEEN GW 15 AND 19 AND AGAIN BETWEEN GW 24 AND 28
     Route: 064
  5. PREDNISOLONE [Concomitant]
     Active Substance: PREDNISOLONE
     Indication: Asthma
     Dosage: MAX. ]
     Route: 064
  6. INFLUVAC TETRA [Concomitant]
     Active Substance: INFLUENZA VIRUS VACCINE QUADRIVALENT TYPE A+B
     Indication: Immunisation
     Route: 064
     Dates: start: 20211111, end: 20211111
  7. VAXZEVRIA [Concomitant]
     Active Substance: AZD-1222
     Indication: COVID-19 immunisation
     Dosage: 1. VACCINATION MORE THAN 30 D BEFORE LMP
     Route: 064
  8. ALBUTEROL [Concomitant]
     Active Substance: ALBUTEROL
     Indication: Asthma
     Route: 064
     Dates: start: 20210519, end: 20220209
  9. Comirnaty monovalent [Concomitant]
     Indication: COVID-19 immunisation
     Dosage: 3. VACCINATION
     Route: 064
     Dates: start: 20220111, end: 20220111
  10. Comirnaty monovalent [Concomitant]
     Dosage: 2. VACCINATION
     Route: 064
     Dates: start: 20210526, end: 20210526
  11. BOOSTRIX [Concomitant]
     Active Substance: TETANUS TOXOID, REDUCED DIPHTHERIA TOXOID AND ACELLULAR PERTUSSIS VACCINE, ADSORBED ANTIGENS
     Indication: Immunisation
     Route: 064
     Dates: start: 20211215, end: 20211215
  12. OPIPRAMOL [Concomitant]
     Active Substance: OPIPRAMOL
     Indication: Anxiety disorder
     Route: 064

REACTIONS (2)
  - Atrial septal defect [Unknown]
  - Foetal exposure during pregnancy [Unknown]

NARRATIVE: CASE EVENT DATE: 20220201
